FAERS Safety Report 5465529-6 (Version None)
Quarter: 2007Q3

REPORT INFORMATION
  Report Type: 
  Country: None (occurrence: None)
  Receive Date: 20070924
  Receipt Date: 20070801
  Transmission Date: 20080115
  Serious: Yes (Other)
  Sender: FDA-Public Use
  Company Number: US-PURDUE-USA_2007_0029211

PATIENT
  Sex: Male

DRUGS (1)
  1. OXYCONTIN [Suspect]
     Indication: SPINAL FRACTURE
     Dates: start: 19980101, end: 20000101

REACTIONS (3)
  - CROHN'S DISEASE [None]
  - DRUG DEPENDENCE [None]
  - VISION BLURRED [None]
